FAERS Safety Report 6871409-1 (Version None)
Quarter: 2010Q3

REPORT INFORMATION
  Report Type: 
  Country: None (occurrence: None)
  Receive Date: 20100723
  Receipt Date: 20100715
  Transmission Date: 20110219
  Serious: Yes (Other)
  Sender: FDA-Public Use
  Company Number: US-SANOFI-AVENTIS-2010SA041690

PATIENT
  Age: 56 Year
  Sex: Female

DRUGS (4)
  1. LANTUS [Suspect]
     Indication: DIABETES MELLITUS
     Dosage: DOSE:55 UNIT(S)
     Route: 058
  2. LANTUS [Suspect]
     Dosage: DOSE:22 UNIT(S)
     Route: 058
  3. LANTUS [Suspect]
     Dosage: STARTED LANTUS IN 2007 ;STARTING DOSES NOT PROVIDED
     Dates: start: 20070101
  4. SOLOSTAR [Suspect]
     Dates: start: 20070101

REACTIONS (4)
  - BLOOD GLUCOSE INCREASED [None]
  - DRUG DOSE OMISSION [None]
  - LIMB OPERATION [None]
  - VISUAL ACUITY REDUCED [None]
